FAERS Safety Report 7388704-2 (Version None)
Quarter: 2011Q2

REPORT INFORMATION
  Report Type: 
  Country: None (occurrence: None)
  Receive Date: 20110401
  Receipt Date: 20110325
  Transmission Date: 20111010
  Serious: Yes (Death, Other)
  Sender: FDA-Public Use
  Company Number: JP-BRISTOL-MYERS SQUIBB COMPANY-15628340

PATIENT
  Sex: Male

DRUGS (14)
  1. ANTI-THYMOCYTE GLOBULIN NOS [Suspect]
  2. MYCOPHENOLATE MOFETIL [Suspect]
     Indication: PROPHYLAXIS AGAINST GRAFT VERSUS HOST DISEASE
  3. CYTOSINE ARABINOSIDE [Suspect]
     Dosage: 1 DF: 300 MG/M SUP(2)
  4. METHYLPREDNISOLONE [Suspect]
  5. PREDNISOLONE [Suspect]
     Dosage: 3-DAY COURSE ; AND ALSO 21DAYS
  6. TACROLIMUS [Suspect]
     Indication: PROPHYLAXIS AGAINST GRAFT VERSUS HOST DISEASE
  7. METENOLONE [Suspect]
  8. NELARABINE [Suspect]
  9. VINCRISTINE [Suspect]
  10. CYCLOPHOSPHAMIDE [Suspect]
  11. FLUDARABINE [Suspect]
     Dosage: 1 DF: 30 MG/M
  12. METHOTREXATE [Suspect]
     Indication: PROPHYLAXIS AGAINST GRAFT VERSUS HOST DISEASE
  13. L-ASPARAGINASE [Suspect]
     Dosage: 1 DF: 6000 U/M2
  14. VINDESINE [Suspect]

REACTIONS (9)
  - ABDOMINAL PAIN [None]
  - CARDIO-RESPIRATORY ARREST [None]
  - HYPERGLYCAEMIA [None]
  - ILEUS PARALYTIC [None]
  - PLEURAL EFFUSION [None]
  - MELAENA [None]
  - NON-HODGKIN'S LYMPHOMA [None]
  - HYPOPROTEINAEMIA [None]
  - SKIN EROSION [None]
